FAERS Safety Report 22098890 (Version 3)
Quarter: 2023Q2

REPORT INFORMATION
  Report Type: Report from Study
  Country: CA (occurrence: CA)
  Receive Date: 20230315
  Receipt Date: 20230420
  Transmission Date: 20230722
  Serious: Yes (Death, Hospitalization, Other)
  Sender: FDA-Public Use
  Company Number: CA-TAKEDA-2023TUS025137

PATIENT
  Age: 65 Year
  Sex: Male

DRUGS (7)
  1. VEDOLIZUMAB [Suspect]
     Active Substance: VEDOLIZUMAB
     Indication: Crohn^s disease
     Dosage: 300 MILLIGRAM
     Route: 042
     Dates: start: 20230126
  2. TRULICITY [Concomitant]
     Active Substance: DULAGLUTIDE
     Dosage: UNK UNK, QID
     Route: 058
  3. DROPERIDOL [Concomitant]
     Active Substance: DROPERIDOL
     Dosage: 30 MILLIGRAM, QD
  4. LITHIUM [Concomitant]
     Active Substance: LITHIUM
     Dosage: 450 MILLIGRAM, QD
  5. QUETIAPINE [Concomitant]
     Active Substance: QUETIAPINE
     Dosage: 400 MILLIGRAM, QD
  6. METFORMIN [Concomitant]
     Active Substance: METFORMIN HYDROCHLORIDE
     Dosage: 700 MILLIGRAM, QD
  7. PERINDOPRIL [Concomitant]
     Active Substance: PERINDOPRIL
     Dosage: 4 MILLIGRAM, QD

REACTIONS (6)
  - Death [Fatal]
  - Pain [Unknown]
  - COVID-19 [Unknown]
  - Delirium [Unknown]
  - Pleural effusion [Unknown]
  - Malignant melanoma [Unknown]

NARRATIVE: CASE EVENT DATE: 20230406
